FAERS Safety Report 17001896 (Version 5)
Quarter: 2019Q4

REPORT INFORMATION
  Report Type: Report from Study
  Country: IN (occurrence: IN)
  Receive Date: 20191106
  Receipt Date: 20191223
  Transmission Date: 20200122
  Serious: Yes (Hospitalization)
  Sender: FDA-Public Use
  Company Number: IN-EISAI MEDICAL RESEARCH-EC-2019-064695

PATIENT
  Age: 56 Year
  Sex: Female
  Weight: 47 kg

DRUGS (15)
  1. DICLOFENAC + PARACETAMOL [Concomitant]
  2. METOCLOPRAMIDE. [Concomitant]
     Active Substance: METOCLOPRAMIDE
  3. LENVATINIB [Suspect]
     Active Substance: LENVATINIB
     Route: 048
     Dates: start: 20191113, end: 20191123
  4. AMLODIPINE [Concomitant]
     Active Substance: AMLODIPINE BESYLATE
  5. GLIMEPIRIDE. [Concomitant]
     Active Substance: GLIMEPIRIDE
  6. PANTOPRAZOLE [Concomitant]
     Active Substance: PANTOPRAZOLE
  7. BIOCOF-D [Concomitant]
  8. MORPHINE [Concomitant]
     Active Substance: MORPHINE
  9. SODIUM PICOSULFATE [Concomitant]
     Active Substance: SODIUM PICOSULFATE
  10. SODIUM VALPROATE [Concomitant]
     Active Substance: VALPROATE SODIUM
  11. LENVATINIB [Suspect]
     Active Substance: LENVATINIB
     Indication: THYROID CANCER METASTATIC
     Route: 048
     Dates: start: 20191012, end: 20191031
  12. LEVOTHYROXINE. [Concomitant]
     Active Substance: LEVOTHYROXINE
  13. DOXOFYLLINE [Concomitant]
     Active Substance: DOXOFYLLINE
  14. GERMER-I [Concomitant]
  15. PHENYTOIN SODIUM. [Concomitant]
     Active Substance: PHENYTOIN SODIUM

REACTIONS (1)
  - Cholecystitis acute [Recovered/Resolved]

NARRATIVE: CASE EVENT DATE: 20191030
